FAERS Safety Report 15322667 (Version 1)
Quarter: 2018Q3

REPORT INFORMATION
  Report Type: Spontaneous
  Country: GB (occurrence: GB)
  Receive Date: 20180827
  Receipt Date: 20180827
  Transmission Date: 20181010
  Serious: Yes (Other)
  Sender: FDA-Public Use
  Company Number: GB-MYLANLABS-2018M1063675

PATIENT
  Age: 50 Year
  Sex: Male

DRUGS (2)
  1. ACICLOVIR [Suspect]
     Active Substance: ACYCLOVIR
     Indication: PRODUCT USED FOR UNKNOWN INDICATION
     Dosage: UNK
     Route: 065
  2. ACICLOVIR [Suspect]
     Active Substance: ACYCLOVIR
     Dosage: DOSE DECREASED
     Route: 065

REACTIONS (6)
  - Crystal nephropathy [Recovering/Resolving]
  - Agitation [Unknown]
  - Aggression [Unknown]
  - Renal injury [Recovering/Resolving]
  - Abnormal behaviour [Unknown]
  - Pyrexia [Unknown]
